FAERS Safety Report 10917502 (Version 1)
Quarter: 2015Q1

REPORT INFORMATION
  Report Type: Spontaneous
  Country: US (occurrence: None)
  Receive Date: 20150312
  Receipt Date: 20150312
  Transmission Date: 20150721
  Serious: Yes (Other)
  Sender: FDA-Public Use
  Company Number: None

PATIENT
  Age: 45 Year
  Sex: Female
  Weight: 61.24 kg

DRUGS (11)
  1. FISH OIL [Concomitant]
     Active Substance: FISH OIL
  2. SERTRALINE 50 MG [Suspect]
     Active Substance: SERTRALINE HYDROCHLORIDE
     Indication: ANXIETY
     Dosage: DATES OF USE: AROUND 3 WEEKS. 1.5 TABLETS, ONCE DAILY, TAKEN BY MOUTH
     Route: 048
  3. CALCIUM [Concomitant]
     Active Substance: CALCIUM
  4. FIBER CAPSULE [Concomitant]
  5. NEURONTIN [Concomitant]
     Active Substance: GABAPENTIN
  6. IMITREX [Concomitant]
     Active Substance: SUMATRIPTAN\SUMATRIPTAN SUCCINATE
  7. SERTRALINE 75 MG [Concomitant]
  8. TOPIRIMATE [Concomitant]
  9. DEXILANT [Concomitant]
     Active Substance: DEXLANSOPRAZOLE
  10. DUCOSATE SODIUM [Concomitant]
  11. ALEVE [Concomitant]
     Active Substance: NAPROXEN SODIUM

REACTIONS (3)
  - Product quality issue [None]
  - Product substitution issue [None]
  - Blepharospasm [None]

NARRATIVE: CASE EVENT DATE: 20150210
